FAERS Safety Report 5468481-2 (Version None)
Quarter: 2007Q3

REPORT INFORMATION
  Report Type: 
  Country: None (occurrence: None)
  Receive Date: 20070926
  Receipt Date: 20070625
  Transmission Date: 20080115
  Serious: No
  Sender: FDA-Public Use
  Company Number: US-BRISTOL-MYERS SQUIBB COMPANY-13825526

PATIENT
  Age: 52 Year
  Sex: Female
  Weight: 70 kg

DRUGS (8)
  1. ORENCIA [Suspect]
     Indication: RHEUMATOID ARTHRITIS
     Route: 042
     Dates: start: 20060823
  2. PLAQUENIL [Concomitant]
  3. NEXIUM [Concomitant]
  4. TRILEPTAL [Concomitant]
  5. MOBIC [Concomitant]
  6. MULTI-VITAMIN [Concomitant]
  7. CALCIUM [Concomitant]
  8. COREG [Concomitant]

REACTIONS (6)
  - APATHY [None]
  - DRUG INEFFECTIVE [None]
  - FATIGUE [None]
  - RHEUMATOID ARTHRITIS [None]
  - SCIATICA [None]
  - WEIGHT BEARING DIFFICULTY [None]
